FAERS Safety Report 9821282 (Version 3)
Quarter: 2013Q4

REPORT INFORMATION
  Report Type: Spontaneous
  Country: US (occurrence: None)
  Receive Date: 20131028
  Receipt Date: 20131028
  Transmission Date: 20140711
  Serious: Yes (Other)
  Sender: FDA-Public Use
  Company Number: 2013US001198

PATIENT
  Age: 79 Year
  Sex: Male
  Weight: 113 kg

DRUGS (20)
  1. ICLUSIG [Suspect]
     Indication: CHRONIC MYELOID LEUKAEMIA
     Dosage: 45 MG, QD, ORAL
     Route: 048
     Dates: start: 20130207, end: 20130220
  2. ASA (ASA) [Concomitant]
  3. LIPITOR (ATORVASTATIN CALCIUM) [Concomitant]
  4. NTG [Concomitant]
  5. FUROSEMIDE (FUROSEMIDE) [Concomitant]
  6. LEVOTHYROXINE (LEVOTHYROXINE) [Concomitant]
  7. VENLAFAXINE (VENLAFAXINE) [Concomitant]
  8. DOXAZOSIN (DOXAZOSIN) [Concomitant]
  9. METOPROLOL (METOPROLOL) [Concomitant]
  10. ISOSORBIDE (ISOSORBIDE) [Concomitant]
  11. DIGOXIN (DIGOXIN) [Concomitant]
  12. FLOMAX (TAMSULOSIN HYDROCHLORIDE) [Concomitant]
  13. NEURONTIN (GABAPENTIN) [Concomitant]
  14. ALLOPURINOL (ALLOPURINOL) [Concomitant]
  15. STOOL SOFTENER (DOCUSATE SODIUM) [Concomitant]
  16. WARFARIN (WARFARIN) [Concomitant]
  17. ALBUTEROL SULFATE (ALBUTEROL SULFATE) [Concomitant]
  18. ADVAIR (FLUTICASONE PROPIONATE, SALMETEROL XINAFOATE) [Concomitant]
  19. COMBIVENT (IPRATROPIUM BROMIDE, SALBUTAMOL SULFATE) [Concomitant]
  20. PREDNISONE (PREDNISONE) [Concomitant]

REACTIONS (3)
  - Anaemia [None]
  - Weight increased [None]
  - Rash [None]
